FAERS Safety Report 11499177 (Version 2)
Quarter: 2016Q4

REPORT INFORMATION
  Report Type: Spontaneous
  Country: US (occurrence: US)
  Receive Date: 20150913
  Receipt Date: 20161111
  Transmission Date: 20170206
  Serious: Yes (Other)
  Sender: FDA-Public Use
  Company Number: US-ELI_LILLY_AND_COMPANY-US201509002835

PATIENT
  Sex: Female

DRUGS (1)
  1. CYMBALTA [Suspect]
     Active Substance: DULOXETINE HYDROCHLORIDE
     Indication: PRODUCT USED FOR UNKNOWN INDICATION
     Dosage: UNK, UNKNOWN
     Route: 065

REACTIONS (14)
  - Affect lability [Unknown]
  - Paraesthesia [Unknown]
  - Anxiety [Unknown]
  - Sleep disorder [Unknown]
  - Nausea [Unknown]
  - Irritability [Unknown]
  - Sensory disturbance [Unknown]
  - Suicidal ideation [Unknown]
  - Headache [Unknown]
  - Mood swings [Unknown]
  - Vertigo [Unknown]
  - Fatigue [Unknown]
  - Dizziness [Unknown]
  - Withdrawal syndrome [Unknown]
